FAERS Safety Report 5533659-6 (Version None)
Quarter: 2007Q4

REPORT INFORMATION
  Report Type: 
  Country: None (occurrence: None)
  Receive Date: 20071129
  Receipt Date: 20071115
  Transmission Date: 20080405
  Serious: Yes (Death)
  Sender: FDA-Public Use
  Company Number: S07-SWI-02387-01

PATIENT
  Age: 76 Year
  Sex: Male

DRUGS (6)
  1. ESCITALOPRAM [Suspect]
     Indication: DEPRESSION
     Dosage: 35 MG QD PO
     Route: 048
     Dates: start: 20070312, end: 20070429
  2. REMERON [Suspect]
     Indication: DEPRESSION
     Dosage: 45 MG QD PO
     Route: 048
     Dates: start: 20070410, end: 20070429
  3. LEXOTANIL (BROMAZEPAM) [Suspect]
     Indication: SLEEP DISORDER
     Dosage: 3.75 MG QD PO
     Route: 048
     Dates: start: 20061218, end: 20070429
  4. LOSARTAN POTASSIUM AND HYDROCHLOROTHIAZIDE [Concomitant]
  5. PANTOPRAZOLE SODIUM [Concomitant]
  6. PERENTEROL (YEAST DRIED) [Concomitant]

REACTIONS (3)
  - ASPHYXIA [None]
  - COMPLETED SUICIDE [None]
  - OVERDOSE [None]
